FAERS Safety Report 18486698 (Version 3)
Quarter: 2021Q1

REPORT INFORMATION
  Report Type: Spontaneous
  Country: US (occurrence: US)
  Receive Date: 20201110
  Receipt Date: 20210312
  Transmission Date: 20210419
  Serious: Yes (Hospitalization, Disabling, Other)
  Sender: FDA-Public Use
  Company Number: US-PURDUE-USA-2020-0173242

PATIENT
  Sex: Female

DRUGS (8)
  1. OXYCODONE/ ACETAMINOPHEN TABLETS [Suspect]
     Active Substance: ACETAMINOPHEN\OXYCODONE HYDROCHLORIDE
     Indication: PRODUCT USED FOR UNKNOWN INDICATION
     Dosage: UNK
     Route: 048
  2. DILAUDID [Suspect]
     Active Substance: HYDROMORPHONE HYDROCHLORIDE
     Indication: PRODUCT USED FOR UNKNOWN INDICATION
     Dosage: UNK
     Route: 048
  3. HYDROCODONE BITARTRATE AND ACETAMINOPHEN [Suspect]
     Active Substance: ACETAMINOPHEN\HYDROCODONE BITARTRATE
     Indication: PRODUCT USED FOR UNKNOWN INDICATION
     Dosage: UNK
     Route: 048
  4. TRAMADOL CR TABLETS (RHODES 21?745) [Suspect]
     Active Substance: TRAMADOL
     Indication: PRODUCT USED FOR UNKNOWN INDICATION
     Dosage: UNK
     Route: 048
  5. OXYCONTIN [Suspect]
     Active Substance: OXYCODONE HYDROCHLORIDE
     Indication: PAIN
     Dosage: 240 TABLET, MONTHLY
     Route: 048
     Dates: start: 2011, end: 2015
  6. FENTANYL. [Suspect]
     Active Substance: FENTANYL
     Indication: GASTROINTESTINAL DISORDER
  7. FENTANYL. [Suspect]
     Active Substance: FENTANYL
     Indication: PAIN
     Dosage: 100 MCG, DAILY
     Route: 065
     Dates: start: 2011, end: 2015
  8. OXYCONTIN [Suspect]
     Active Substance: OXYCODONE HYDROCHLORIDE
     Indication: GASTROINTESTINAL DISORDER

REACTIONS (15)
  - Overdose [Unknown]
  - Drug tolerance [Unknown]
  - Tinnitus [Unknown]
  - Vertigo [Unknown]
  - Psychotic disorder [Unknown]
  - Physical disability [Unknown]
  - Injury [Unknown]
  - Nausea [Unknown]
  - Drug dependence [Unknown]
  - Condition aggravated [Unknown]
  - Mental impairment [Unknown]
  - Pancreatic injury [Unknown]
  - Migraine [Unknown]
  - Obsessive-compulsive disorder [Unknown]
  - Abdominal pain upper [Unknown]
